FAERS Safety Report 9234856 (Version 1)
Quarter: 2013Q2

REPORT INFORMATION
  Report Type: Spontaneous
  Country: DE (occurrence: DE)
  Receive Date: 20130416
  Receipt Date: 20130416
  Transmission Date: 20140414
  Serious: Yes (Other)
  Sender: FDA-Public Use
  Company Number: DE-PFIZER INC-2013115537

PATIENT
  Age: 50 Year
  Sex: Female
  Weight: 67 kg

DRUGS (2)
  1. VARENICLINE TARTRATE [Suspect]
     Indication: SMOKING CESSATION THERAPY
     Dosage: 1 MG, 2X/DAY, IN THE MORNING AND AT NIGHT
     Dates: start: 20121123, end: 20121225
  2. VARENICLINE TARTRATE [Suspect]
     Dosage: 1 MG, 1X/DAY, IN THE MORNING
     Dates: start: 20121226, end: 20130101

REACTIONS (12)
  - Aphasia [Not Recovered/Not Resolved]
  - Headache [Not Recovered/Not Resolved]
  - Blood pressure diastolic increased [Not Recovered/Not Resolved]
  - Vertigo [Not Recovered/Not Resolved]
  - Anxiety [Not Recovered/Not Resolved]
  - Affect lability [Not Recovered/Not Resolved]
  - Tearfulness [Not Recovered/Not Resolved]
  - Diarrhoea [Not Recovered/Not Resolved]
  - Nausea [Not Recovered/Not Resolved]
  - Hyperhidrosis [Not Recovered/Not Resolved]
  - Gingival infection [Not Recovered/Not Resolved]
  - Dysgeusia [Not Recovered/Not Resolved]
